FAERS Safety Report 6409771-6 (Version None)
Quarter: 2009Q4

REPORT INFORMATION
  Report Type: 
  Country: None (occurrence: None)
  Receive Date: 20091022
  Receipt Date: 20091015
  Transmission Date: 20100525
  Serious: Yes (Other)
  Sender: FDA-Public Use
  Company Number: US-ASTRAZENECA-2008UW24794

PATIENT
  Age: 68 Year
  Sex: Female
  Weight: 61.9 kg

DRUGS (7)
  1. ARIMIDEX [Suspect]
     Indication: BREAST CANCER
     Route: 048
     Dates: start: 20060101
  2. TOPROL-XL [Suspect]
     Route: 048
  3. CRESTOR [Concomitant]
     Route: 048
  4. TRICOR [Concomitant]
     Route: 065
  5. HYDROCHLOROTHIAZIDE [Concomitant]
     Route: 065
  6. AMBIEN CR [Concomitant]
     Route: 065
  7. VITAMINS [Concomitant]
     Route: 065

REACTIONS (6)
  - ARTHRALGIA [None]
  - DIZZINESS [None]
  - HOT FLUSH [None]
  - HYPERHIDROSIS [None]
  - LOSS OF CONSCIOUSNESS [None]
  - WEIGHT INCREASED [None]
